FAERS Safety Report 25016626 (Version 1)
Quarter: 2025Q1

REPORT INFORMATION
  Report Type: Spontaneous
  Country: CA (occurrence: CA)
  Receive Date: 20250227
  Receipt Date: 20250227
  Transmission Date: 20250409
  Serious: Yes (Other)
  Sender: ROCHE
  Company Number: CA-ROCHE-10000219033

PATIENT
  Age: 71 Year
  Sex: Female

DRUGS (1)
  1. BEVACIZUMAB [Suspect]
     Active Substance: BEVACIZUMAB
     Indication: Radiation necrosis
     Route: 065

REACTIONS (3)
  - Cataract nuclear [Unknown]
  - Meningioma [Unknown]
  - Off label use [Unknown]
